FAERS Safety Report 4620205-4 (Version None)
Quarter: 2005Q1

REPORT INFORMATION
  Report Type: 
  Country: None (occurrence: None)
  Receive Date: 20050324
  Receipt Date: 20050318
  Transmission Date: 20050727
  Serious: Yes (Death)
  Sender: FDA-Public Use
  Company Number: J081-002-001898

PATIENT
  Age: 81 Year
  Sex: Male

DRUGS (7)
  1. ARICEPT [Suspect]
     Indication: DEMENTIA ALZHEIMER'S TYPE
     Dosage: 3 MG, 1 IN 1 D, ORAL
     Route: 048
     Dates: start: 20050106, end: 20050119
  2. CEROCRAL                                         (IFENPRODIL TARTRATE) [Concomitant]
  3. KETAS         (IBUDILAST) [Concomitant]
  4. ASPIRIN [Concomitant]
  5. TEGRETOL [Concomitant]
  6. CHLORPROMAZINE HCL [Concomitant]
  7. NELBON             (NITRAZEPAM) [Concomitant]

REACTIONS (8)
  - CARDIO-RESPIRATORY ARREST [None]
  - CONDITION AGGRAVATED [None]
  - DEMENTIA ALZHEIMER'S TYPE [None]
  - DEPRESSION [None]
  - FEELING ABNORMAL [None]
  - MEMORY IMPAIRMENT [None]
  - NEUROGENIC BLADDER [None]
  - PORIOMANIA [None]
